FAERS Safety Report 5395366-2 (Version None)
Quarter: 2007Q3

REPORT INFORMATION
  Report Type: 
  Country: None (occurrence: None)
  Receive Date: 20070724
  Receipt Date: 20070719
  Transmission Date: 20080115
  Serious: Yes (Disabling)
  Sender: FDA-Public Use
  Company Number: US-MERCK-0707USA02349

PATIENT
  Age: 73 Year
  Sex: Male
  Weight: 101 kg

DRUGS (5)
  1. JANUVIA [Suspect]
     Indication: TYPE 2 DIABETES MELLITUS
     Route: 048
     Dates: start: 20061221, end: 20070620
  2. COUMADIN [Concomitant]
     Route: 065
  3. PLAVIX [Concomitant]
     Route: 065
  4. FLOMAX (MORNIFLUMATE) [Concomitant]
     Route: 065
  5. ZETIA [Concomitant]
     Route: 048

REACTIONS (2)
  - HAEMOPTYSIS [None]
  - NEUROPATHY PERIPHERAL [None]
